FAERS Safety Report 9601274 (Version 1)
Quarter: 2013Q4

REPORT INFORMATION
  Report Type: Spontaneous
  Country: GR (occurrence: GR)
  Receive Date: 20131006
  Receipt Date: 20131006
  Transmission Date: 20140711
  Serious: Yes (Hospitalization, Other)
  Sender: FDA-Public Use
  Company Number: PHHY2013GR110497

PATIENT
  Age: 73 Year
  Sex: Female

DRUGS (1)
  1. AMLODIPINE, VALSARTAN [Suspect]
     Indication: HYPERTENSION

REACTIONS (7)
  - Orthostatic hypotension [Recovering/Resolving]
  - Loss of consciousness [Unknown]
  - Heart rate increased [Unknown]
  - Blood pressure decreased [Unknown]
  - Blood pressure increased [Unknown]
  - Leukoencephalopathy [Unknown]
  - Carotid arteriosclerosis [Unknown]
